FAERS Safety Report 9934901 (Version 3)
Quarter: 2014Q2

REPORT INFORMATION
  Report Type: Spontaneous
  Country: US (occurrence: US)
  Receive Date: 20140228
  Receipt Date: 20140414
  Transmission Date: 20141212
  Serious: Yes (Other)
  Sender: FDA-Public Use
  Company Number: US-SA-2014SA024487

PATIENT
  Age: 63 Year
  Sex: Female
  Weight: 68 kg

DRUGS (9)
  1. LANTUS SOLOSTAR [Suspect]
     Indication: TYPE 2 DIABETES MELLITUS
     Dosage: DOSE: 6-10 UNITS.
     Route: 065
     Dates: start: 20130213
  2. SOLOSTAR [Concomitant]
     Indication: TYPE 2 DIABETES MELLITUS
     Dates: start: 20130213
  3. HYDROCORTISONE [Concomitant]
     Indication: ILL-DEFINED DISORDER
     Dosage: 20MG AM-10MG PM
     Dates: start: 198403
  4. SYNTHROID [Concomitant]
     Dates: start: 198403
  5. LORAZEPAM [Concomitant]
     Indication: ANXIETY
     Dates: start: 1990
  6. ZANTAC [Concomitant]
     Indication: HYPERCHLORHYDRIA
     Dates: start: 198403
  7. PROTONIX [Concomitant]
     Indication: GASTRITIS EROSIVE
     Dates: start: 201203
  8. TRICOR [Concomitant]
     Indication: BLOOD TRIGLYCERIDES INCREASED
     Dates: start: 2007
  9. TRICOR [Concomitant]
     Indication: BLOOD CHOLESTEROL INCREASED
     Dates: start: 2007

REACTIONS (1)
  - Lung neoplasm malignant [Unknown]
